FAERS Safety Report 21253879 (Version 1)
Quarter: 2022Q3

REPORT INFORMATION
  Report Type: Spontaneous
  Country: US (occurrence: None)
  Receive Date: 20220825
  Receipt Date: 20220825
  Transmission Date: 20221027
  Serious: No
  Sender: FDA-Public Use
  Company Number: 2022A280160

PATIENT
  Sex: Male

DRUGS (2)
  1. TEZSPIRE [Suspect]
     Active Substance: TEZEPELUMAB-EKKO
     Route: 065
  2. TEZEPELUMAB [Concomitant]
     Active Substance: TEZEPELUMAB
     Route: 065

REACTIONS (3)
  - Back pain [Unknown]
  - Abdominal pain [Unknown]
  - Nausea [Unknown]
